FAERS Safety Report 11655193 (Version 2)
Quarter: 2015Q4

REPORT INFORMATION
  Report Type: Report from Study
  Country: US (occurrence: US)
  Receive Date: 20151023
  Receipt Date: 20151109
  Transmission Date: 20160304
  Serious: Yes (Hospitalization)
  Sender: FDA-Public Use
  Company Number: US-BIOGENIDEC-2015BI140467

PATIENT
  Age: 60 Year
  Sex: Female
  Weight: 49 kg

DRUGS (7)
  1. CARBAMAZEPINE. [Concomitant]
     Active Substance: CARBAMAZEPINE
  2. ESTRADIOL. [Concomitant]
     Active Substance: ESTRADIOL
  3. AVONEX [Suspect]
     Active Substance: INTERFERON BETA-1A
     Indication: MULTIPLE SCLEROSIS
     Route: 030
     Dates: start: 20150520
  4. DIAZEPAM. [Concomitant]
     Active Substance: DIAZEPAM
     Route: 048
  5. POTASSIUM [Concomitant]
     Active Substance: POTASSIUM
  6. FISH OIL [Concomitant]
     Active Substance: FISH OIL
  7. MOTRIN [Concomitant]
     Active Substance: IBUPROFEN

REACTIONS (6)
  - Uhthoff^s phenomenon [Recovered/Resolved]
  - Pyrexia [Recovered/Resolved]
  - Vomiting [Recovered/Resolved]
  - Influenza like illness [Unknown]
  - Nephrolithiasis [Recovered/Resolved]
  - Infection [Recovered/Resolved]
